FAERS Safety Report 7587335-9 (Version None)
Quarter: 2011Q3

REPORT INFORMATION
  Report Type: 
  Country: None (occurrence: None)
  Receive Date: 20110701
  Receipt Date: 20110621
  Transmission Date: 20111222
  Serious: Yes (Death, Hospitalization)
  Sender: FDA-Public Use
  Company Number: AU-AMGEN-AUSCT2011018617

PATIENT
  Age: 82 Year
  Sex: Male

DRUGS (15)
  1. DOXORUBICIN HCL [Suspect]
     Indication: DIFFUSE LARGE B-CELL LYMPHOMA
     Route: 065
  2. INDERAL [Concomitant]
     Dosage: UNK
     Dates: start: 20110101, end: 20110302
  3. PRAVACHOL [Concomitant]
     Dosage: UNK
     Dates: start: 20090101, end: 20110302
  4. WARFARIN SODIUM [Concomitant]
     Dosage: UNK
     Dates: start: 20090101, end: 20110101
  5. IFOSFAMIDE [Suspect]
     Indication: DIFFUSE LARGE B-CELL LYMPHOMA
     Dosage: 2700 MG, Q3WK
     Route: 042
     Dates: start: 20080226
  6. VINCRISTINE [Suspect]
     Indication: DIFFUSE LARGE B-CELL LYMPHOMA
     Route: 065
  7. MINAX [Concomitant]
     Dosage: UNK
     Dates: start: 20090101, end: 20110302
  8. PEGFILGRASTIM [Suspect]
     Indication: DIFFUSE LARGE B-CELL LYMPHOMA
     Dosage: 6 A?G, UNK
     Route: 058
     Dates: start: 20080226, end: 20080613
  9. RITUXIMAB [Suspect]
     Indication: DIFFUSE LARGE B-CELL LYMPHOMA
     Dosage: 770 MG, Q3WK
     Route: 042
     Dates: start: 20080226
  10. CYCLOPHOSPHAMIDE [Suspect]
     Indication: DIFFUSE LARGE B-CELL LYMPHOMA
     Route: 065
  11. ETOPOSIDE [Suspect]
     Indication: DIFFUSE LARGE B-CELL LYMPHOMA
     Dosage: 480 MG, Q3WK
     Route: 042
     Dates: start: 20080226
  12. PREDNISONE [Suspect]
     Indication: DIFFUSE LARGE B-CELL LYMPHOMA
     Route: 065
  13. DIAMICRON [Concomitant]
     Dosage: UNK
     Dates: start: 20100101, end: 20110302
  14. DIGOXIN [Concomitant]
     Dosage: UNK
     Dates: start: 20090101, end: 20110302
  15. PANTOPRAZOLE [Concomitant]
     Dosage: UNK
     Dates: start: 20090101, end: 20110302

REACTIONS (1)
  - MYELODYSPLASTIC SYNDROME [None]
